FAERS Safety Report 21211974 (Version 1)
Quarter: 2022Q3

REPORT INFORMATION
  Report Type: Report from Study
  Country: NL (occurrence: NL)
  Receive Date: 20220815
  Receipt Date: 20220815
  Transmission Date: 20221027
  Serious: Yes (Other)
  Sender: FDA-Public Use
  Company Number: NL-AMGEN-NLDSL2022137188

PATIENT
  Age: 58 Year
  Sex: Male

DRUGS (4)
  1. XGEVA [Suspect]
     Active Substance: DENOSUMAB
     Indication: Prophylaxis
     Dosage: 120 MILLIGRAM/1,7ML , Q4WK
     Route: 058
  2. BICALUTAMIDE [Concomitant]
     Active Substance: BICALUTAMIDE
     Dosage: 50 MILLIGRAM, QD (1D1T)
  3. CALCIUM CARBONATE\CHOLECALCIFEROL [Concomitant]
     Active Substance: CALCIUM CARBONATE\CHOLECALCIFEROL
     Dosage: 1.25 GRAM/800IE (500MG CA), QD (1D1T)
  4. LEUPROLIDE [Concomitant]
     Active Substance: LEUPROLIDE
     Dosage: WWSP 30 MILLIGRAM, Q6MO (1 X PER HALF YEAR 1 INJECTION)

REACTIONS (1)
  - Jaw fistula [Unknown]

NARRATIVE: CASE EVENT DATE: 20220101
